FAERS Safety Report 8043737-8 (Version None)
Quarter: 2012Q1

REPORT INFORMATION
  Report Type: 
  Country: None (occurrence: None)
  Receive Date: 20120113
  Receipt Date: 20120103
  Transmission Date: 20120608
  Serious: Yes (Hospitalization)
  Sender: FDA-Public Use
  Company Number: US-BIOGENIDEC-2010BI021796

PATIENT
  Age: 52 Year
  Sex: Female

DRUGS (7)
  1. AVONEX [Suspect]
     Route: 030
     Dates: start: 20040801, end: 20040901
  2. AVONEX [Suspect]
     Indication: MULTIPLE SCLEROSIS
     Route: 030
     Dates: start: 20090109, end: 20111201
  3. PAIN PATCH (NOS) [Concomitant]
     Indication: PAIN
  4. AVONEX [Suspect]
     Route: 030
     Dates: start: 20060201, end: 20070901
  5. AVONEX [Suspect]
     Route: 030
     Dates: start: 19990701
  6. AVONEX [Suspect]
     Route: 030
     Dates: start: 20090109, end: 20111201
  7. AVONEX [Suspect]
     Route: 030
     Dates: start: 20090109, end: 20111201

REACTIONS (24)
  - CHEST DISCOMFORT [None]
  - DYSPHAGIA [None]
  - HYPOTONIA [None]
  - BODY TEMPERATURE INCREASED [None]
  - MYOCARDIAL INFARCTION [None]
  - HYPOTENSION [None]
  - STENT PLACEMENT [None]
  - CORONARY ARTERY DISEASE [None]
  - BLOOD PRESSURE INCREASED [None]
  - FALL [None]
  - EATING DISORDER [None]
  - HYPERTENSION [None]
  - ARTHRITIS INFECTIVE [None]
  - INCOHERENT [None]
  - DYSURIA [None]
  - TACHYCARDIA [None]
  - CARDIOVASCULAR EVALUATION [None]
  - MOBILITY DECREASED [None]
  - CARDIAC ENZYMES INCREASED [None]
  - WOUND HAEMORRHAGE [None]
  - DEVICE RELATED INFECTION [None]
  - BLOOD POTASSIUM INCREASED [None]
  - BLOOD TEST ABNORMAL [None]
  - CONTUSION [None]
